FAERS Safety Report 8182367-4 (Version None)
Quarter: 2012Q1

REPORT INFORMATION
  Report Type: 
  Country: None (occurrence: None)
  Receive Date: 20120303
  Receipt Date: 20120222
  Transmission Date: 20120608
  Serious: Yes (Other)
  Sender: FDA-Public Use
  Company Number: FR-AMGEN-FRASP2012012499

PATIENT
  Age: 63 Year
  Sex: Female

DRUGS (2)
  1. TETANUS VACCINE [Suspect]
     Dosage: UNK
     Dates: start: 20111202
  2. ENBREL [Suspect]
     Indication: RHEUMATOID ARTHRITIS
     Dosage: 50 MG, WEEKLY

REACTIONS (11)
  - PHYSICAL DISABILITY [None]
  - RHEUMATOID ARTHRITIS [None]
  - INJECTION SITE ERYTHEMA [None]
  - BEDRIDDEN [None]
  - HEART RATE DECREASED [None]
  - INJECTION SITE HAEMATOMA [None]
  - SJOGREN'S SYNDROME [None]
  - INJECTION SITE SWELLING [None]
  - DRY SKIN [None]
  - EYE DISORDER [None]
  - LIP SWELLING [None]
